FAERS Safety Report 6334926-9 (Version None)
Quarter: 2009Q3

REPORT INFORMATION
  Report Type: 
  Country: None (occurrence: None)
  Receive Date: 20090831
  Receipt Date: 20090825
  Transmission Date: 20100115
  Serious: Yes (Other)
  Sender: FDA-Public Use
  Company Number: US-AVENTIS-200915178US

PATIENT
  Sex: Male
  Weight: 74.99 kg

DRUGS (2)
  1. LANTUS [Suspect]
     Route: 058
     Dates: start: 20090530
  2. LANTUS [Suspect]
     Route: 058
     Dates: start: 20090530

REACTIONS (5)
  - ARTHRALGIA [None]
  - ASTHENIA [None]
  - BLOOD GLUCOSE INCREASED [None]
  - FALL [None]
  - LOSS OF CONSCIOUSNESS [None]
